FAERS Safety Report 15121803 (Version 1)
Quarter: 2018Q3

REPORT INFORMATION
  Report Type: Spontaneous
  Country: US (occurrence: US)
  Receive Date: 20180613
  Receipt Date: 20180613
  Transmission Date: 20181010
  Serious: No
  Sender: FDA-Public Use
  Company Number: None

PATIENT
  Age: 77 Year
  Sex: Female
  Weight: 160 kg

DRUGS (2)
  1. IBRANCE [Suspect]
     Active Substance: PALBOCICLIB
     Indication: BREAST CANCER
     Route: 048
     Dates: start: 20170623
  2. IBRANCE 125MG CAPSULES [Concomitant]
     Dates: start: 20170623

REACTIONS (4)
  - Eye discharge [None]
  - Rash [None]
  - Burning sensation [None]
  - Dyspepsia [None]

NARRATIVE: CASE EVENT DATE: 20180613
